FAERS Safety Report 6682537-8 (Version None)
Quarter: 2010Q2

REPORT INFORMATION
  Report Type: 
  Country: None (occurrence: None)
  Receive Date: 20100415
  Receipt Date: 20100408
  Transmission Date: 20101027
  Serious: Yes (Hospitalization, Other)
  Sender: FDA-Public Use
  Company Number: US-BAYER-201021475GPV

PATIENT
  Age: 45 Year
  Sex: Female
  Weight: 55 kg

DRUGS (16)
  1. CIPROFLOXACIN [Suspect]
     Indication: STENOTROPHOMONAS INFECTION
     Dosage: TOTAL DAILY DOSE: 400 MG
     Route: 042
  2. GENTAMICIN [Concomitant]
     Indication: STENOTROPHOMONAS INFECTION
     Route: 042
  3. LEVOFLOXACIN [Concomitant]
     Indication: STENOTROPHOMONAS INFECTION
     Route: 042
  4. RED BLOOD CELLS [Concomitant]
     Indication: PELVIC FRACTURE
  5. RED BLOOD CELLS [Concomitant]
  6. FRESH FROZEN PLASMA [Concomitant]
     Indication: PELVIC FRACTURE
  7. METOPROLOL TARTRATE [Concomitant]
     Indication: DRUG USE FOR UNKNOWN INDICATION
     Route: 042
  8. METOPROLOL TARTRATE [Concomitant]
     Route: 042
  9. METOCLOPRAMIDE HYDROCHLORIDE [Concomitant]
     Indication: DRUG USE FOR UNKNOWN INDICATION
     Route: 042
  10. INSULIN [Concomitant]
     Indication: DRUG USE FOR UNKNOWN INDICATION
     Dosage: SLIDING SCALE
  11. PROPOFOL [Concomitant]
     Indication: SEDATION
     Dosage: TITRATED TO SEDATION
  12. ACETAMINOPHEN [Concomitant]
     Indication: PAIN
     Route: 054
  13. LORAZEPAM [Concomitant]
     Indication: ANXIETY
  14. HYDRALAZINE HCL [Concomitant]
     Indication: BLOOD PRESSURE ABNORMAL
     Route: 042
  15. FLUOXETINE [Concomitant]
     Indication: PREMENSTRUAL SYNDROME
  16. ANTIHYPERTENSIVES [Concomitant]
     Indication: HYPERTENSION

REACTIONS (4)
  - AMMONIA INCREASED [None]
  - BLOOD BILIRUBIN INCREASED [None]
  - HEPATOTOXICITY [None]
  - TRANSAMINASES INCREASED [None]
